FAERS Safety Report 7041809-8 (Version None)
Quarter: 2010Q4

REPORT INFORMATION
  Report Type: 
  Country: None (occurrence: None)
  Receive Date: 20101013
  Receipt Date: 20101011
  Transmission Date: 20110411
  Serious: Yes (Hospitalization)
  Sender: FDA-Public Use
  Company Number: US-AMGEN-KDL437111

PATIENT
  Sex: Female
  Weight: 78.1 kg

DRUGS (6)
  1. ENBREL [Suspect]
     Indication: RHEUMATOID ARTHRITIS
     Route: 058
     Dates: start: 19990101
  2. LEVOTHYROXINE [Concomitant]
     Route: 048
  3. LISINOPRIL [Concomitant]
     Route: 048
  4. PROTONIX [Concomitant]
     Route: 048
  5. VICODIN [Concomitant]
     Route: 048
  6. FOLIC ACID [Concomitant]
     Route: 048

REACTIONS (6)
  - BONE EROSION [None]
  - FINGER DEFORMITY [None]
  - INJECTION SITE PAIN [None]
  - JOINT SWELLING [None]
  - PAIN IN EXTREMITY [None]
  - RHEUMATOID ARTHRITIS [None]
